FAERS Safety Report 17312943 (Version 3)
Quarter: 2022Q2

REPORT INFORMATION
  Report Type: Spontaneous
  Country: US (occurrence: US)
  Receive Date: 20200124
  Receipt Date: 20220510
  Transmission Date: 20220721
  Serious: Yes (Death, Hospitalization, Other)
  Sender: FDA-Public Use
  Company Number: US-SUN PHARMACEUTICAL INDUSTRIES LTD-2020R1-234151

PATIENT
  Age: 60 Year
  Sex: Female

DRUGS (3)
  1. DOCETAXEL [Suspect]
     Active Substance: DOCETAXEL
     Indication: Breast cancer metastatic
     Dosage: UNK
     Route: 065
  2. TRASTUZUMAB [Suspect]
     Active Substance: TRASTUZUMAB
     Indication: Breast cancer metastatic
     Dosage: UNK
     Route: 065
  3. PERTUZUMAB [Suspect]
     Active Substance: PERTUZUMAB
     Indication: Breast cancer metastatic
     Route: 065

REACTIONS (14)
  - Stomatitis [Fatal]
  - Febrile neutropenia [Fatal]
  - Diarrhoea [Fatal]
  - Asthenia [Fatal]
  - Odynophagia [Fatal]
  - Mucosal haemorrhage [Fatal]
  - Hypotension [Fatal]
  - Renal failure [Fatal]
  - Faecal vomiting [Fatal]
  - Ileus [Fatal]
  - Hypoalbuminaemia [Fatal]
  - Generalised oedema [Fatal]
  - Hypervolaemia [Fatal]
  - Multiple organ dysfunction syndrome [Fatal]
